FAERS Safety Report 10862172 (Version 1)
Quarter: 2015Q1

REPORT INFORMATION
  Report Type: Spontaneous
  Country: CH (occurrence: CH)
  Receive Date: 20150224
  Receipt Date: 20150224
  Transmission Date: 20150721
  Serious: Yes (Other)
  Sender: FDA-Public Use
  Company Number: CH-TEVA-541797ISR

PATIENT
  Age: 67 Year
  Sex: Male
  Weight: 97 kg

DRUGS (13)
  1. PRADAXA [Interacting]
     Active Substance: DABIGATRAN ETEXILATE MESYLATE
     Indication: ATRIAL FIBRILLATION
     Dosage: 220 MILLIGRAM DAILY;
     Route: 048
     Dates: start: 20141108, end: 20141112
  2. DALALGAN 1G [Concomitant]
     Dosage: 4X1G AS REQUIRED
     Route: 048
  3. AMOXI-MEPHA 1000 LACTAB [Suspect]
     Active Substance: AMOXICILLIN
     Indication: HELICOBACTER INFECTION
     Dosage: 2000 MILLIGRAM DAILY;
     Route: 048
     Dates: start: 20141104, end: 20141115
  4. MOVICOL LIQ. [Concomitant]
     Route: 065
  5. NOVALGIN [Concomitant]
     Active Substance: METAMIZOLE SODIUM
     Dosage: 4X1000MG AS REQUIRED
     Route: 048
  6. KLACID [Interacting]
     Active Substance: CLARITHROMYCIN
     Indication: HELICOBACTER INFECTION
     Dosage: 1000 MILLIGRAM DAILY;
     Route: 065
     Dates: start: 20141104, end: 20141115
  7. ALUCOL GEL [Concomitant]
     Active Substance: ALUMINUM HYDROXIDE\MAGNESIUM HYDROXIDE
     Route: 065
  8. ASPIRIN CARDIO 100MG [Interacting]
     Active Substance: ASPIRIN
     Dosage: 100 MILLIGRAM DAILY; WAS PART OF THE MEDICATION AT ADMISSION
     Route: 048
  9. ATORVASTATIN 40MG [Concomitant]
     Dosage: 40 MILLIGRAM DAILY;
     Route: 048
  10. PLAVIX [Interacting]
     Active Substance: CLOPIDOGREL BISULFATE
     Dosage: 75 MILLIGRAM DAILY;
     Route: 048
  11. PANTOZOL [Concomitant]
     Active Substance: PANTOPRAZOLE SODIUM
     Indication: HELICOBACTER INFECTION
     Dosage: 40 MILLIGRAM DAILY; CONTINUING
     Route: 048
  12. LISINOPRIL. [Concomitant]
     Active Substance: LISINOPRIL
     Route: 065
  13. CORVATON RET 8MG [Concomitant]
     Route: 065

REACTIONS (2)
  - Gastrointestinal haemorrhage [Recovered/Resolved]
  - Drug interaction [Recovered/Resolved]

NARRATIVE: CASE EVENT DATE: 20141109
